FAERS Safety Report 26123546 (Version 1)
Quarter: 2025Q4

REPORT INFORMATION
  Report Type: Spontaneous
  Country: AE (occurrence: AE)
  Receive Date: 20251204
  Receipt Date: 20251204
  Transmission Date: 20260117
  Serious: Yes (Life-Threatening, Hospitalization, Other)
  Sender: HETERO
  Company Number: AE-AMAROX PHARMA-HET2025AE07268

PATIENT
  Age: 25 Year
  Sex: Male

DRUGS (7)
  1. LINEZOLID [Suspect]
     Active Substance: LINEZOLID
     Indication: Enterococcus test
     Dosage: UNK (ON ADMISSION ADMISSION DAY NUMBER 8)
     Route: 065
     Dates: start: 202410, end: 202410
  2. FENTANYL [Suspect]
     Active Substance: FENTANYL
     Indication: Product used for unknown indication
     Dosage: UNK
     Route: 065
     Dates: start: 202410, end: 202410
  3. METOCLOPRAMIDE [Suspect]
     Active Substance: METOCLOPRAMIDE
     Indication: Product used for unknown indication
     Dosage: UNK
     Route: 065
     Dates: start: 202410
  4. PIPERACILLIN [Concomitant]
     Active Substance: PIPERACILLIN
     Indication: Pyrexia
     Dosage: UNK (ON ADMISSION DAY 4)
     Route: 065
     Dates: start: 202410
  5. PIPERACILLIN [Concomitant]
     Active Substance: PIPERACILLIN
     Indication: Leukocytosis
  6. TAZOBACTAM [Concomitant]
     Active Substance: TAZOBACTAM
     Indication: Pyrexia
     Dosage: UNK (ON ADMISSION DAY 4)
     Route: 065
     Dates: start: 202410
  7. TAZOBACTAM [Concomitant]
     Active Substance: TAZOBACTAM
     Indication: Leukocytosis

REACTIONS (2)
  - Lactic acidosis [Recovered/Resolved]
  - Serotonin syndrome [Recovering/Resolving]

NARRATIVE: CASE EVENT DATE: 20241001
